FAERS Safety Report 20406420 (Version 2)
Quarter: 2022Q1

REPORT INFORMATION
  Report Type: Spontaneous
  Country: US (occurrence: US)
  Receive Date: 20220131
  Receipt Date: 20220303
  Transmission Date: 20220423
  Serious: No
  Sender: FDA-Public Use
  Company Number: US-GW PHARMA-202201USGW00386

PATIENT
  Age: 10 Year
  Sex: Male

DRUGS (5)
  1. EPIDIOLEX [Suspect]
     Active Substance: CANNABIDIOL
     Indication: Epilepsy
     Dosage: 240 MG, FREQUENCY NOT REPORTED
     Route: 048
     Dates: start: 20211119, end: 2021
  2. EPIDIOLEX [Suspect]
     Active Substance: CANNABIDIOL
     Dosage: 180 MILLIGRAM, BID
     Route: 048
     Dates: start: 202112
  3. EPIDIOLEX [Suspect]
     Active Substance: CANNABIDIOL
     Dosage: 240 MILLIGRAM, BID
     Route: 048
  4. DIASTAT [Concomitant]
     Active Substance: DIAZEPAM
     Indication: Product used for unknown indication
     Dosage: UNK
     Route: 065
     Dates: start: 202201, end: 202201
  5. ONFI [Concomitant]
     Active Substance: CLOBAZAM
     Indication: Product used for unknown indication
     Dosage: UNK, TAPERED AND NO LONGER ON ONFI
     Route: 065
     Dates: end: 202201

REACTIONS (5)
  - Clumsiness [Unknown]
  - Tremor [Unknown]
  - Seizure [Unknown]
  - Aggression [Unknown]
  - Fatigue [Unknown]

NARRATIVE: CASE EVENT DATE: 20220101
